FAERS Safety Report 22078855 (Version 1)
Quarter: 2023Q1

REPORT INFORMATION
  Report Type: Report from Study
  Country: AU (occurrence: AU)
  Receive Date: 20230309
  Receipt Date: 20230309
  Transmission Date: 20230418
  Serious: Yes (Hospitalization)
  Sender: FDA-Public Use
  Company Number: AU-SA-SAC20230303001056

PATIENT
  Age: 71 Year
  Sex: Male

DRUGS (19)
  1. ISATUXIMAB [Suspect]
     Active Substance: ISATUXIMAB
     Indication: Plasma cell myeloma
     Dosage: 1018 MG
     Route: 065
     Dates: start: 20201127, end: 20201127
  2. ISATUXIMAB [Suspect]
     Active Substance: ISATUXIMAB
     Dosage: 1018 MG
     Dates: start: 20230203, end: 20230203
  3. LENALIDOMIDE [Suspect]
     Active Substance: LENALIDOMIDE
     Indication: Plasma cell myeloma
     Dosage: 15 MG
     Dates: start: 20200604, end: 20200604
  4. LENALIDOMIDE [Suspect]
     Active Substance: LENALIDOMIDE
     Dosage: 15 MG
     Dates: start: 20230209, end: 20230209
  5. DEXAMETHASONE [Suspect]
     Active Substance: DEXAMETHASONE
     Indication: Plasma cell myeloma
     Dosage: 8 MG
     Dates: start: 20200604, end: 20200604
  6. DEXAMETHASONE [Suspect]
     Active Substance: DEXAMETHASONE
     Dosage: 8 MG
     Dates: start: 20230210, end: 20230210
  7. PREGABALIN [Concomitant]
     Active Substance: PREGABALIN
     Indication: Pain
     Dosage: 75 MG, BID
     Dates: start: 2016
  8. ROSUVASTATIN [Concomitant]
     Active Substance: ROSUVASTATIN
     Indication: Dyslipidaemia
     Dosage: 10 MG, QD
     Dates: start: 2013
  9. ASPIRIN [Concomitant]
     Active Substance: ASPIRIN
     Indication: Prophylaxis
     Dosage: UNK
     Dates: start: 2011
  10. PIZOTYLINE [Concomitant]
     Active Substance: PIZOTYLINE
     Indication: Vascular headache
     Dosage: 0.5 MG, QD
     Dates: start: 201810
  11. ACETAMINOPHEN [Concomitant]
     Active Substance: ACETAMINOPHEN
     Indication: Pain
     Dosage: 1 G, PRN
     Dates: start: 2016
  12. VENLAFAXINE HYDROCHLORIDE [Concomitant]
     Active Substance: VENLAFAXINE HYDROCHLORIDE
     Indication: Depression
     Dosage: 75 MG, QD
     Dates: start: 2018
  13. TEMAZEPAM [Concomitant]
     Active Substance: TEMAZEPAM
     Indication: Insomnia
     Dosage: 10 MG, PRN
     Dates: start: 2011
  14. DESMOPRESSIN [Concomitant]
     Active Substance: DESMOPRESSIN
     Indication: Insomnia
     Dosage: 50 MG
     Dates: start: 2019
  15. ZOLEDRONIC ACID [Concomitant]
     Active Substance: ZOLEDRONIC ACID
     Indication: Bone disorder
     Dosage: 4 MG, QM
     Dates: start: 20201224
  16. CALCIUM CARBONATE [Concomitant]
     Active Substance: CALCIUM CARBONATE
     Indication: Supplementation therapy
     Dosage: 600 MG, QD
     Dates: start: 20210521
  17. MAGNESIUM [Concomitant]
     Active Substance: MAGNESIUM
     Indication: Supplementation therapy
     Dosage: 1 G, BID
     Dates: start: 20210813
  18. VITAMIN D NOS [Concomitant]
     Active Substance: VITAMIN D NOS
     Indication: Supplementation therapy
     Dosage: 10000 IU
     Dates: start: 20210813
  19. FREMANEZUMAB [Concomitant]
     Active Substance: FREMANEZUMAB
     Indication: Headache
     Dosage: 225 MG
     Dates: start: 20210827

REACTIONS (1)
  - Influenza [Recovered/Resolved]

NARRATIVE: CASE EVENT DATE: 20230223
